FAERS Safety Report 4318458-5 (Version None)
Quarter: 2004Q1

REPORT INFORMATION
  Report Type: 
  Country: None (occurrence: None)
  Receive Date: 20040315
  Receipt Date: 20040304
  Transmission Date: 20041129
  Serious: Yes (Other)
  Sender: FDA-Public Use
  Company Number: 2004202670FR

PATIENT
  Sex: Female

DRUGS (1)
  1. PROSTIN E2 [Suspect]
     Indication: ABORTION INDUCED
     Dosage: VAGINAL
     Route: 067
     Dates: start: 20040304, end: 20040304

REACTIONS (4)
  - COMPLICATIONS OF MATERNAL EXPOSURE TO THERAPEUTIC DRUGS [None]
  - GENERALISED OEDEMA [None]
  - HYPERSENSITIVITY [None]
  - MATERNAL DRUGS AFFECTING FOETUS [None]
